FAERS Safety Report 5576792-5 (Version None)
Quarter: 2007Q4

REPORT INFORMATION
  Report Type: 
  Country: None (occurrence: None)
  Receive Date: 20071228
  Receipt Date: 20071221
  Transmission Date: 20080405
  Serious: Yes (Death, Other)
  Sender: FDA-Public Use
  Company Number: DK-ABBOTT-07P-044-0426801-00

PATIENT
  Sex: Female

DRUGS (6)
  1. HUMIRA [Suspect]
     Indication: ANKYLOSING SPONDYLITIS
     Route: 058
     Dates: start: 20060807, end: 20070406
  2. VACCINATION YELLOW FEVER [Concomitant]
     Indication: DRUG USE FOR UNKNOWN INDICATION
  3. ISONIAZID [Concomitant]
     Indication: ANTIBIOTIC PROPHYLAXIS
  4. TRANDOLAN [Concomitant]
     Indication: PAIN
     Dosage: 150-200 MG
     Route: 048
     Dates: end: 20060915
  5. MALONETTA [Concomitant]
     Indication: CONTRACEPTION
     Route: 048
  6. MALARIA PROPHYLAXIS [Concomitant]
     Indication: DRUG USE FOR UNKNOWN INDICATION

REACTIONS (10)
  - ABORTION SPONTANEOUS [None]
  - ACUTE MYELOID LEUKAEMIA [None]
  - ANAEMIA [None]
  - ANKYLOSING SPONDYLITIS [None]
  - FOETAL MOVEMENTS DECREASED [None]
  - HEPATIC FUNCTION ABNORMAL [None]
  - LABOUR PAIN [None]
  - LEUKOCYTOSIS [None]
  - PYREXIA [None]
  - THROMBOCYTOPENIA [None]
